FAERS Safety Report 22265865 (Version 2)
Quarter: 2023Q4

REPORT INFORMATION
  Report Type: Report from Study
  Country: DE (occurrence: DE)
  Receive Date: 20230428
  Receipt Date: 20231010
  Transmission Date: 20240110
  Serious: Yes (Hospitalization)
  Sender: FDA-Public Use
  Company Number: DE-ABBVIE-4745648

PATIENT
  Age: 79 Year
  Sex: Female

DRUGS (1)
  1. RINVOQ [Suspect]
     Active Substance: UPADACITINIB
     Indication: Rheumatoid arthritis
     Route: 048
     Dates: start: 202108, end: 20221108

REACTIONS (4)
  - Oesophageal motility disorder [Unknown]
  - Reactive gastropathy [Unknown]
  - Oral mucosa erosion [Unknown]
  - Back pain [Unknown]

NARRATIVE: CASE EVENT DATE: 20221205
